FAERS Safety Report 6488578-8 (Version None)
Quarter: 2009Q4

REPORT INFORMATION
  Report Type: 
  Country: None (occurrence: None)
  Receive Date: 20091207
  Receipt Date: 20091120
  Transmission Date: 20100525
  Serious: Yes (Death, Life-Threatening, Hospitalization, Other)
  Sender: FDA-Public Use
  Company Number: 2009002978

PATIENT
  Age: 55 Year
  Sex: Female

DRUGS (12)
  1. TARCEVA [Suspect]
     Indication: NON-SMALL CELL LUNG CANCER
     Dosage: (150 MG, QD), ORAL
     Route: 048
     Dates: start: 20090824, end: 20090914
  2. ENOXAPARIN SODIUM [Suspect]
     Indication: THROMBOSIS PROPHYLAXIS
     Dosage: (40 MG, QD), SUBCUTANEOUS
     Route: 058
     Dates: start: 20090912
  3. SIMVASTATIN [Concomitant]
  4. MORPHINE SULFATE [Concomitant]
  5. DOXYCYCLINE [Concomitant]
  6. ONDANSETRON [Concomitant]
  7. HALOPERIDOL [Concomitant]
  8. AMITRIPTYLINE HYDROCHLORIDE [Concomitant]
  9. CHLORHEXIDINE (CHLORHEXIDINE) [Concomitant]
  10. LACTULOSE [Concomitant]
  11. CEPHALEXIN [Concomitant]
  12. SENNA (SENNA) [Concomitant]

REACTIONS (7)
  - AGITATION [None]
  - CONFUSIONAL STATE [None]
  - DIARRHOEA [None]
  - DYSPNOEA [None]
  - REFUSAL OF TREATMENT BY PATIENT [None]
  - SUDDEN DEATH [None]
  - THROMBOCYTOPENIA [None]
